FAERS Safety Report 5199841-5 (Version None)
Quarter: 2006Q4

REPORT INFORMATION
  Report Type: 
  Country: None (occurrence: None)
  Receive Date: 20061229
  Receipt Date: 20061211
  Transmission Date: 20070319
  Serious: Yes (Other)
  Sender: FDA-Public Use
  Company Number: GXKR2006NL08240

PATIENT
  Age: 48 Year
  Sex: Male

DRUGS (6)
  1. DICLOFENAC (NGX) (DICLOFENAC) TABLET, 75MG [Suspect]
     Indication: ARTHRITIS
     Dosage: 75 MG, BID, ORAL
     Route: 048
     Dates: start: 20061125, end: 20061125
  2. PANTOZOL (PANTOPRAZOLE SODIUM) TABLET, 40MG [Suspect]
     Indication: PROPHYLAXIS
     Dosage: 40 MG, QD, ORAL
     Route: 048
     Dates: start: 20061124, end: 20061124
  3. CARBASALATE CALCIUM (CARBASALATE CALCIUM) [Concomitant]
  4. HYDROCHLOROTHIAZIDE W/VALSARTAN (HYDROCHLOROTHIAZIDE, VALSARTAN) [Concomitant]
  5. METOPROLOL TARTRATE [Concomitant]
  6. FLUTICASONE PROPIONATE W/SALMETEROL XINAFOATE (FLUTICASONE PROPIONATE, [Concomitant]

REACTIONS (2)
  - MYALGIA [None]
  - SYNCOPE [None]
